FAERS Safety Report 8950310 (Version 1)
Quarter: 2012Q4

REPORT INFORMATION
  Report Type: Spontaneous
  Country: US (occurrence: None)
  Receive Date: 20121130
  Receipt Date: 20121130
  Transmission Date: 20130627
  Serious: Yes (Other)
  Sender: FDA-Public Use
  Company Number: None

PATIENT
  Age: 85 Year
  Sex: Female
  Weight: 74.84 kg

DRUGS (1)
  1. SALONPAS PAIN RELIEVING PATCH HOT [Suspect]
     Dosage: 1 patch once top
     Route: 061
     Dates: start: 20121128, end: 20121128

REACTIONS (1)
  - Thermal burn [None]
